FAERS Safety Report 12254640 (Version 1)
Quarter: 2016Q2

REPORT INFORMATION
  Report Type: Spontaneous
  Country: US (occurrence: US)
  Receive Date: 20160411
  Receipt Date: 20160411
  Transmission Date: 20160815
  Serious: No
  Sender: FDA-Public Use
  Company Number: US-SA-2015SA064182

PATIENT
  Age: 86 Year
  Sex: Female

DRUGS (1)
  1. ALLEGRA-D [Suspect]
     Active Substance: FEXOFENADINE\PSEUDOEPHEDRINE
     Dosage: USING FOR THREE DAYS NOW
     Route: 048

REACTIONS (2)
  - Eye swelling [Unknown]
  - Eye irritation [Unknown]
